FAERS Safety Report 19084047 (Version 1)
Quarter: 2021Q2

REPORT INFORMATION
  Report Type: Spontaneous
  Country: US (occurrence: US)
  Receive Date: 20210401
  Receipt Date: 20210401
  Transmission Date: 20210717
  Serious: Yes (Death)
  Sender: FDA-Public Use
  Company Number: US-GLENMARK PHARMACEUTICALS-2021GMK053163

PATIENT
  Age: 70 Year
  Sex: Male

DRUGS (9)
  1. AXITINIB [Concomitant]
     Active Substance: AXITINIB
     Indication: BONE CANCER METASTATIC
  2. PEMBROLIZUMAB. [Concomitant]
     Active Substance: PEMBROLIZUMAB
     Indication: RENAL CELL CARCINOMA
     Dosage: 200 MILLIGRAM, EVERY 3 WEEKS
     Route: 042
  3. T4 [Concomitant]
     Active Substance: LEVOTHYROXINE
     Indication: MYXOEDEMA COMA
     Dosage: 400 MICROGRAM, UNK
     Route: 042
  4. PEMBROLIZUMAB. [Concomitant]
     Active Substance: PEMBROLIZUMAB
     Indication: BONE CANCER METASTATIC
  5. LEVOTHYROXINE. [Concomitant]
     Active Substance: LEVOTHYROXINE
     Indication: PRODUCT USED FOR UNKNOWN INDICATION
     Dosage: 25 MILLIGRAM, OD
     Route: 048
  6. HYDROCORTISONE BUTYRATE. [Suspect]
     Active Substance: HYDROCORTISONE BUTYRATE
     Indication: MYXOEDEMA COMA
     Dosage: 100 MILLIGRAM, UNK
     Route: 042
  7. CARVEDILOL. [Concomitant]
     Active Substance: CARVEDILOL
     Indication: PRODUCT USED FOR UNKNOWN INDICATION
     Dosage: 12.5 MILLIGRAM, BID
     Route: 048
  8. AXITINIB [Concomitant]
     Active Substance: AXITINIB
     Indication: RENAL CELL CARCINOMA
     Dosage: 7 MILLIGRAM, BID
     Route: 048
  9. T3 [Concomitant]
     Active Substance: LIOTHYRONINE SODIUM
     Indication: MYXOEDEMA COMA
     Dosage: 20 MICROGRAM, UNK
     Route: 042

REACTIONS (2)
  - Treatment failure [Fatal]
  - General physical health deterioration [Fatal]
